FAERS Safety Report 23641923 (Version 1)
Quarter: 2024Q1

REPORT INFORMATION
  Report Type: Spontaneous
  Country: PT (occurrence: PT)
  Receive Date: 20240318
  Receipt Date: 20240318
  Transmission Date: 20240410
  Serious: Yes (Other)
  Sender: FDA-Public Use
  Company Number: None

PATIENT
  Age: 45 Year
  Sex: Female

DRUGS (3)
  1. VOLTAREN [Suspect]
     Active Substance: DICLOFENAC SODIUM
     Indication: Arthralgia
     Dosage: UNK, SINGLE SHOT (1 TOTAL)
     Route: 030
     Dates: start: 20220212, end: 20220212
  2. THIOCOLCHICOSIDE [Suspect]
     Active Substance: THIOCOLCHICOSIDE
     Indication: Arthralgia
     Dosage: UNK (TOMA ?NICA) (TOTAL 1)
     Route: 030
     Dates: start: 20220212, end: 20220212
  3. PALEXIA [Suspect]
     Active Substance: TAPENTADOL HYDROCHLORIDE
     Indication: Arthralgia
     Dosage: UNK, (TOMA ?NICA) (TOTAL 1)
     Route: 048
     Dates: start: 20220212, end: 20220212

REACTIONS (6)
  - Vomiting [Recovered/Resolved]
  - Tremor [Recovered/Resolved]
  - Presyncope [Recovered/Resolved]
  - Angioedema [Recovered/Resolved]
  - Rash maculo-papular [Recovered/Resolved]
  - Nausea [Recovered/Resolved]

NARRATIVE: CASE EVENT DATE: 20220212
